FAERS Safety Report 24930440 (Version 1)
Quarter: 2025Q1

REPORT INFORMATION
  Report Type: Other
  Country: JP (occurrence: JP)
  Receive Date: 20250205
  Receipt Date: 20250205
  Transmission Date: 20250409
  Serious: Yes (Other)
  Sender: PL DEVELOPMENTS
  Company Number: JP-P+L Developments of Newyork Corporation-2170527

PATIENT
  Age: 58 Year
  Sex: Male

DRUGS (6)
  1. NAPROXEN [Suspect]
     Active Substance: NAPROXEN
     Indication: Product used for unknown indication
  2. REGORAFENIB [Suspect]
     Active Substance: REGORAFENIB
  3. TIPIRACIL HYDROCHLORIDE\TRIFLURIDINE [Concomitant]
     Active Substance: TIPIRACIL HYDROCHLORIDE\TRIFLURIDINE
  4. BEVACIZUMAB [Concomitant]
     Active Substance: BEVACIZUMAB
  5. CAPOX (Capecitabine and Oxaliplatin) [Concomitant]
  6. ACETAMINOPHEN [Suspect]
     Active Substance: ACETAMINOPHEN

REACTIONS (1)
  - Gastrointestinal perforation [Unknown]
